FAERS Safety Report 5717999-3 (Version None)
Quarter: 2008Q2

REPORT INFORMATION
  Report Type: 
  Country: None (occurrence: None)
  Receive Date: 20080425
  Receipt Date: 20080424
  Transmission Date: 20081010
  Serious: Yes (Other)
  Sender: FDA-Public Use
  Company Number: B0514264A

PATIENT
  Age: 67 Year
  Sex: Male
  Weight: 64 kg

DRUGS (3)
  1. VALTREX [Suspect]
     Indication: HERPES ZOSTER
     Dosage: 1000MG PER DAY
     Route: 048
     Dates: start: 20080324, end: 20080324
  2. VALTREX [Suspect]
     Dosage: 1000MG THREE TIMES PER DAY
     Route: 048
     Dates: start: 20080325, end: 20080326
  3. UNKNOWN DRUG [Concomitant]
     Route: 065

REACTIONS (3)
  - DYSARTHRIA [None]
  - GAIT DISTURBANCE [None]
  - HALLUCINATION [None]
